FAERS Safety Report 7518331-5 (Version None)
Quarter: 2011Q2

REPORT INFORMATION
  Report Type: 
  Country: None (occurrence: None)
  Receive Date: 20110602
  Receipt Date: 20091122
  Transmission Date: 20111010
  Serious: Yes (Death, Hospitalization, Other)
  Sender: FDA-Public Use
  Company Number: US-BAYER-200939829NA

PATIENT
  Age: 77 Year
  Sex: Male
  Weight: 67.12 kg

DRUGS (9)
  1. TOPROL-XL [Concomitant]
     Dosage: 25 MG, UNK
     Route: 048
     Dates: start: 20001030, end: 20011212
  2. LOPID [Concomitant]
     Dosage: 600 MG, UNK
     Route: 048
     Dates: start: 20010130, end: 20010820
  3. ACETYLSALICYLIC ACID SRT [Concomitant]
     Dosage: 325 MG, UNK
     Route: 048
     Dates: start: 20010215
  4. ETODOLAC [Concomitant]
     Dosage: 400 MG, UNK
     Route: 048
     Dates: start: 20010130
  5. LISINOPRIL [Concomitant]
     Dosage: 10 MG, QD
     Route: 048
     Dates: start: 20010215
  6. TRAZODONE HCL [Concomitant]
     Dosage: 25 MG, UNK
     Route: 048
     Dates: start: 20001030
  7. DILTIAZEM [Concomitant]
     Dosage: 240 MG, QD
     Route: 048
     Dates: start: 20001030, end: 20011212
  8. ANTIVERT [Concomitant]
     Dosage: 12.5
     Dates: start: 20010215
  9. TRASYLOL [Suspect]
     Indication: CORONARY ARTERY BYPASS
     Route: 042
     Dates: start: 20010604

REACTIONS (13)
  - RENAL INJURY [None]
  - FEAR [None]
  - ANHEDONIA [None]
  - PAIN [None]
  - MULTI-ORGAN FAILURE [None]
  - DEATH [None]
  - STRESS [None]
  - RENAL IMPAIRMENT [None]
  - ANXIETY [None]
  - RENAL FAILURE [None]
  - EMOTIONAL DISTRESS [None]
  - UNEVALUABLE EVENT [None]
  - INJURY [None]
